FAERS Safety Report 21418951 (Version 1)
Quarter: 2022Q4

REPORT INFORMATION
  Report Type: Spontaneous
  Country: BG (occurrence: BG)
  Receive Date: 20221006
  Receipt Date: 20221006
  Transmission Date: 20230113
  Serious: Yes (Death, Other)
  Sender: FDA-Public Use
  Company Number: BG-PFIZER INC-PV202200072520

PATIENT
  Age: 50 Year
  Sex: Female
  Weight: 48 kg

DRUGS (1)
  1. BESPONSA [Suspect]
     Active Substance: INOTUZUMAB OZOGAMICIN
     Indication: Acute lymphocytic leukaemia recurrent
     Dosage: 1 MG 1ST INFUSION OF THE FIRST COURSE
     Route: 065
     Dates: start: 20220822

REACTIONS (10)
  - Multiple organ dysfunction syndrome [Fatal]
  - COVID-19 [Fatal]
  - Pancytopenia [Unknown]
  - Haemorrhagic diathesis [Unknown]
  - Febrile neutropenia [Unknown]
  - Pneumonia [Unknown]
  - Hepatic failure [Unknown]
  - Acute kidney injury [Unknown]
  - Anxiety disorder [Unknown]
  - Depression [Unknown]
